FAERS Safety Report 5576822-0 (Version None)
Quarter: 2007Q4

REPORT INFORMATION
  Report Type: 
  Country: None (occurrence: None)
  Receive Date: 20071228
  Receipt Date: 20071221
  Transmission Date: 20080405
  Serious: Yes (Hospitalization)
  Sender: FDA-Public Use
  Company Number: CA-ABBOTT-07P-028-0427678-00

PATIENT
  Sex: Male

DRUGS (4)
  1. KALETRA [Suspect]
     Indication: HIV INFECTION
     Dosage: 200MG/50MG
     Route: 048
     Dates: start: 20071130
  2. KALETRA [Suspect]
     Dates: start: 20071207
  3. METHADONE HCL [Concomitant]
     Indication: DRUG USE FOR UNKNOWN INDICATION
     Dates: start: 20010101
  4. TRUVADA [Concomitant]
     Indication: HIV INFECTION
     Dates: start: 20071130

REACTIONS (5)
  - INFECTION [None]
  - NAUSEA [None]
  - PYREXIA [None]
  - SHIGELLA INFECTION [None]
  - VOMITING [None]
